FAERS Safety Report 23638457 (Version 14)
Quarter: 2024Q3

REPORT INFORMATION
  Report Type: Spontaneous
  Country: FR (occurrence: FR)
  Receive Date: 20240315
  Receipt Date: 20240710
  Transmission Date: 20241016
  Serious: Yes (Death, Life-Threatening, Other)
  Sender: LUNDBECK
  Company Number: FR-ELERTE-202400010

PATIENT

DRUGS (20)
  1. CLOBAZAM [Interacting]
     Active Substance: CLOBAZAM
     Indication: Product used for unknown indication
     Dosage: 10 MG
     Route: 065
  2. CLOBAZAM [Interacting]
     Active Substance: CLOBAZAM
     Dosage: UNK
     Route: 065
     Dates: start: 201608, end: 20160908
  3. CLOBAZAM [Interacting]
     Active Substance: CLOBAZAM
     Dosage: UNK
     Route: 048
     Dates: start: 20160824, end: 2016
  4. ACETAMINOPHEN\TRAMADOL HYDROCHLORIDE [Suspect]
     Active Substance: ACETAMINOPHEN\TRAMADOL HYDROCHLORIDE
     Indication: Product used for unknown indication
     Dosage: UNK
  5. AMISULPRIDE [Suspect]
     Active Substance: AMISULPRIDE
     Indication: Bipolar disorder
     Dosage: UNK
  6. TRAMADOL HYDROCHLORIDE [Suspect]
     Active Substance: TRAMADOL HYDROCHLORIDE
     Indication: Back pain
     Dosage: UNK
     Route: 048
     Dates: start: 20160903, end: 2016
  7. MORPHINE HYDROCHLORIDE [Suspect]
     Active Substance: MORPHINE HYDROCHLORIDE
     Indication: Back pain
     Dosage: UNK
     Route: 065
     Dates: start: 2016, end: 2016
  8. QUETIAPINE FUMARATE [Suspect]
     Active Substance: QUETIAPINE FUMARATE
     Indication: Product used for unknown indication
     Dosage: 500 MG
     Route: 048
     Dates: start: 20160830, end: 2016
  9. IBUPROFEN [Suspect]
     Active Substance: IBUPROFEN
     Indication: Back pain
     Dosage: 1 DF
     Route: 048
     Dates: start: 2016, end: 2016
  10. THIOCOLCHICOSIDE [Suspect]
     Active Substance: THIOCOLCHICOSIDE
     Indication: Back pain
     Dosage: UNK
     Route: 048
     Dates: start: 20160903, end: 2016
  11. ARTEMETHER [Suspect]
     Active Substance: ARTEMETHER
     Indication: Psychiatric symptom
     Dosage: 5 MG
     Route: 048
     Dates: start: 20160810, end: 20160908
  12. ARTEMETHER [Suspect]
     Active Substance: ARTEMETHER
     Indication: Depression
  13. PAROXETINE HYDROCHLORIDE [Suspect]
     Active Substance: PAROXETINE HYDROCHLORIDE\PAROXETINE HYDROCHLORIDE ANHYDROUS
     Indication: Back pain
     Dosage: UNK
     Route: 048
     Dates: start: 20160829, end: 20160908
  14. FENTANYL [Suspect]
     Active Substance: FENTANYL\FENTANYL CITRATE
     Indication: Back pain
     Dosage: 12 UG
     Route: 062
     Dates: start: 20160726, end: 2016
  15. NIFUROXAZIDE [Suspect]
     Active Substance: NIFUROXAZIDE
     Indication: Product used for unknown indication
     Dosage: UNK
     Route: 048
     Dates: start: 2016
  16. ACETAMINOPHEN\CODEINE PHOSPHATE [Suspect]
     Active Substance: ACETAMINOPHEN\CODEINE PHOSPHATE
     Indication: Product used for unknown indication
     Dosage: 500 MG
     Route: 048
     Dates: start: 2016, end: 2016
  17. MEPHENESIN [Suspect]
     Active Substance: MEPHENESIN
     Indication: Product used for unknown indication
     Dosage: UNK
  18. ACETAMINOPHEN [Suspect]
     Active Substance: ACETAMINOPHEN
     Indication: Product used for unknown indication
     Dosage: UNK
  19. CLONAZEPAM [Suspect]
     Active Substance: CLONAZEPAM
     Indication: Product used for unknown indication
     Dosage: 10 MG
  20. NAFRONYL OXALATE [Suspect]
     Active Substance: NAFRONYL OXALATE
     Indication: Product used for unknown indication
     Dosage: UNK

REACTIONS (1)
  - Cardiomyopathy [Fatal]

NARRATIVE: CASE EVENT DATE: 20160905
